FAERS Safety Report 4685203-3 (Version None)
Quarter: 2005Q2

REPORT INFORMATION
  Report Type: 
  Country: None (occurrence: None)
  Receive Date: 20050608
  Receipt Date: 20050406
  Transmission Date: 20051028
  Serious: Yes (Hospitalization)
  Sender: FDA-Public Use
  Company Number: US-BOEHRINGER INGELHEIM PHARMACEUTICALS, INC.-2005-BP-05971BP

PATIENT
  Sex: Female

DRUGS (11)
  1. MOBIC [Suspect]
     Indication: OSTEOARTHRITIS
     Route: 048
     Dates: end: 20050320
  2. MOBIC [Suspect]
     Indication: RHEUMATOID ARTHRITIS
  3. SCIO-469 (BLIND) [Suspect]
     Indication: RHEUMATOID ARTHRITIS
     Route: 048
     Dates: start: 20041007, end: 20050320
  4. SCIO-469 (BLIND) [Suspect]
     Route: 048
     Dates: start: 20050326
  5. HYDROCHLOROTHIAZIDE [Concomitant]
     Route: 048
     Dates: start: 20011001
  6. IMITREX [Concomitant]
     Indication: MIGRAINE
     Route: 058
  7. ZANTAC [Concomitant]
     Indication: GASTROOESOPHAGEAL REFLUX DISEASE
     Route: 048
  8. OCUVITE [Concomitant]
     Indication: NUTRITIONAL SUPPORT
     Route: 048
  9. MULTI-VITAMINS [Concomitant]
     Indication: NUTRITIONAL SUPPORT
     Route: 048
  10. VITAMIN E [Concomitant]
     Indication: NUTRITIONAL SUPPORT
     Route: 048
  11. NORVASC [Concomitant]
     Indication: MIGRAINE
     Route: 048
     Dates: start: 20031201

REACTIONS (6)
  - CLOSTRIDIAL INFECTION [None]
  - CLOSTRIDIUM COLITIS [None]
  - DRUG INTERACTION [None]
  - GASTROINTESTINAL HAEMORRHAGE [None]
  - GASTROINTESTINAL NECROSIS [None]
  - HAEMATOCHEZIA [None]
